FAERS Safety Report 23523966 (Version 1)
Quarter: 2024Q1

REPORT INFORMATION
  Report Type: Spontaneous
  Country: GB (occurrence: GB)
  Receive Date: 20240214
  Receipt Date: 20240214
  Transmission Date: 20240410
  Serious: Yes (Other)
  Sender: FDA-Public Use
  Company Number: None

PATIENT
  Age: 39 Year
  Sex: Female
  Weight: 61 kg

DRUGS (7)
  1. DOXYCYCLINE [Suspect]
     Active Substance: DOXYCYCLINE
     Indication: Ill-defined disorder
     Dosage: UNK
     Route: 065
     Dates: start: 20240201
  2. DOXYCYCLINE [Suspect]
     Active Substance: DOXYCYCLINE
     Dosage: UNK
     Route: 048
     Dates: start: 20240208
  3. BENZOYL PEROXIDE [Concomitant]
     Active Substance: BENZOYL PEROXIDE
     Indication: Ill-defined disorder
     Dosage: QD (APPLY ONCE DAILY ON THE BACK)
     Route: 065
     Dates: start: 20230505, end: 20240129
  4. BRIMONIDINE [Concomitant]
     Active Substance: BRIMONIDINE TARTRATE
     Indication: Ill-defined disorder
     Dosage: QD, (APPLY ONCE A DAY AS NEEDED)
     Route: 065
     Dates: start: 20240130
  5. DOXYCYCLINE [Concomitant]
     Active Substance: DOXYCYCLINE
     Indication: Ill-defined disorder
     Dosage: 1 DOSAGE FORM, QD (TAKE ONE CAPSULE EACH MORNING)
     Route: 065
     Dates: start: 20240130
  6. METRONIDAZOLE [Concomitant]
     Active Substance: METRONIDAZOLE
     Indication: Ill-defined disorder
     Dosage: BID, (APPLY TWICE DAILY ON THE FACE)
     Route: 065
     Dates: start: 20230505
  7. OXYTETRACYCLINE [Concomitant]
     Active Substance: OXYTETRACYCLINE
     Indication: Ill-defined disorder
     Dosage: 2 DOSAGE FORM, BID (TWO TO BE TAKEN TWICE A DAY)
     Route: 065
     Dates: start: 20240205

REACTIONS (1)
  - Blister [Unknown]

NARRATIVE: CASE EVENT DATE: 20240208
